FAERS Safety Report 7795145-2 (Version None)
Quarter: 2011Q4

REPORT INFORMATION
  Report Type: 
  Country: None (occurrence: None)
  Receive Date: 20111004
  Receipt Date: 20110922
  Transmission Date: 20120403
  Serious: Yes (Hospitalization)
  Sender: FDA-Public Use
  Company Number: DE-JNJFOC-20111000212

PATIENT
  Age: 75 Year
  Sex: Female

DRUGS (2)
  1. PALEXIA RETARD [Suspect]
     Route: 048
  2. PALEXIA RETARD [Suspect]
     Indication: PRODUCT USED FOR UNKNOWN INDICATION
     Route: 048
     Dates: start: 20110901, end: 20110901

REACTIONS (2)
  - ABDOMINAL PAIN UPPER [None]
  - ILEUS [None]
